FAERS Safety Report 3645062 (Version 2)
Quarter: 2015Q3

REPORT INFORMATION
  Report Type: Spontaneous
  Country: US (occurrence: US)
  Receive Date: 20010424
  Receipt Date: 20150723
  Transmission Date: 20151125
  Serious: Yes (Life-Threatening, Hospitalization, Disabling, Other)
  Sender: FDA-Public Use
  Company Number: PHEH1999US03124

PATIENT
  Age: 52 Year
  Sex: Male
  Weight: 77.98 kg

DRUGS (3)
  1. ELOCON [Concomitant]
     Active Substance: MOMETASONE FUROATE
     Indication: PRODUCT USED FOR UNKNOWN INDICATION
     Route: 065
  2. LAMISIL [Suspect]
     Active Substance: TERBINAFINE HYDROCHLORIDE
     Indication: TINEA CRURIS
     Dosage: 250 MG, QD
     Route: 048
     Dates: start: 19960831, end: 199608
  3. ROBINUL [Concomitant]
     Active Substance: GLYCOPYRROLATE
     Indication: PRODUCT USED FOR UNKNOWN INDICATION
     Route: 065

REACTIONS (21)
  - Pruritus [Not Recovered/Not Resolved]
  - Dizziness [Recovering/Resolving]
  - Hepatic enzyme increased [Unknown]
  - Paralysis [Recovering/Resolving]
  - Dyspnoea [Recovering/Resolving]
  - Vision blurred [Recovering/Resolving]
  - Hypoaesthesia [Recovering/Resolving]
  - Skin exfoliation [Not Recovered/Not Resolved]
  - Rash papular [Not Recovered/Not Resolved]
  - Fall [Recovering/Resolving]
  - Diplopia [Recovering/Resolving]
  - Bone disorder [Unknown]
  - Pneumonia [Unknown]
  - Dermatitis exfoliative [Recovering/Resolving]
  - Gait disturbance [Recovering/Resolving]
  - Lower motor neurone lesion [Not Recovered/Not Resolved]
  - Respiratory failure [Unknown]
  - Muscular weakness [Recovering/Resolving]
  - Guillain-Barre syndrome [Not Recovered/Not Resolved]
  - Speech disorder [Recovering/Resolving]
  - Hypersensitivity [Recovering/Resolving]

NARRATIVE: CASE EVENT DATE: 199608
